FAERS Safety Report 5738500-4 (Version None)
Quarter: 2008Q2

REPORT INFORMATION
  Report Type: 
  Country: None (occurrence: None)
  Receive Date: 20080515
  Receipt Date: 20080506
  Transmission Date: 20081010
  Serious: Yes (Hospitalization)
  Sender: FDA-Public Use
  Company Number: GB-RANBAXY-2008RR-14961

PATIENT

DRUGS (7)
  1. FLUOXETINE [Suspect]
     Dosage: 40 MG, QD
  2. AMANTADINE HCL [Concomitant]
  3. BACLOFEN [Concomitant]
     Indication: SECONDARY PROGRESSIVE MULTIPLE SCLEROSIS
  4. INTERFERRON BETA [Concomitant]
  5. LEVOTHYROXINE SODIUM [Concomitant]
     Indication: HYPOTHYROIDISM
  6. MODAFINIL [Concomitant]
  7. OXYBUTYNIN CHLORIDE [Concomitant]
     Indication: AUTOMATIC BLADDER

REACTIONS (5)
  - DELIRIUM [None]
  - DELUSION OF GRANDEUR [None]
  - DRUG WITHDRAWAL SYNDROME [None]
  - HALLUCINATIONS, MIXED [None]
  - INFLUENZA LIKE ILLNESS [None]
